FAERS Safety Report 5834059-1 (Version None)
Quarter: 2008Q3

REPORT INFORMATION
  Report Type: 
  Country: None (occurrence: None)
  Receive Date: 20080801
  Receipt Date: 20080801
  Transmission Date: 20090109
  Serious: No
  Sender: FDA-Public Use
  Company Number: None

PATIENT
  Age: 33 Year
  Sex: Female
  Weight: 62.1428 kg

DRUGS (2)
  1. LYRICA [Suspect]
     Indication: CONVULSION
     Dosage: 25MG ONCE A DAY PO
     Route: 048
     Dates: start: 20080130, end: 20080201
  2. LYRICA [Suspect]
     Indication: FIBROMYALGIA
     Dosage: 25MG ONCE A DAY PO
     Route: 048
     Dates: start: 20080130, end: 20080201

REACTIONS (6)
  - ASTHMA [None]
  - CHEST DISCOMFORT [None]
  - CHEST PAIN [None]
  - COUGH [None]
  - DYSPNOEA [None]
  - DYSPNOEA EXERTIONAL [None]
